FAERS Safety Report 24643974 (Version 1)
Quarter: 2024Q4

REPORT INFORMATION
  Report Type: Spontaneous
  Country: GB (occurrence: GB)
  Receive Date: 20241120
  Receipt Date: 20241120
  Transmission Date: 20250115
  Serious: Yes (Other)
  Sender: ELI LILLY AND COMPANY
  Company Number: None

PATIENT
  Sex: Male

DRUGS (1)
  1. LYUMJEV [Suspect]
     Active Substance: INSULIN LISPRO-AABC
     Indication: Product used for unknown indication
     Dosage: UNK, UNKNOWN
     Route: 065

REACTIONS (3)
  - Infusion site vesicles [Recovered/Resolved with Sequelae]
  - Contusion [Recovered/Resolved with Sequelae]
  - Haemorrhage [Recovered/Resolved with Sequelae]
